FAERS Safety Report 5883953-4 (Version None)
Quarter: 2008Q3

REPORT INFORMATION
  Report Type: 
  Country: None (occurrence: None)
  Receive Date: 20080915
  Receipt Date: 20080903
  Transmission Date: 20090109
  Serious: Yes (Other)
  Sender: FDA-Public Use
  Company Number: US-ROCHE-544974

PATIENT
  Age: 75 Year
  Sex: Female

DRUGS (5)
  1. BONIVA [Suspect]
     Indication: OSTEOPOROSIS
     Dosage: FORM: PILL STOPPED FOR ONE MONTH
     Route: 065
     Dates: start: 20060901
  2. EVISTA [Concomitant]
  3. ASPIRIN [Concomitant]
     Dosage: DRUG: BABY ASPIRIN
  4. MULTI-VITAMINS [Concomitant]
  5. MYLANTA [Concomitant]

REACTIONS (5)
  - BACK PAIN [None]
  - CHEST PAIN [None]
  - DENTAL CARIES [None]
  - DIARRHOEA [None]
  - RECTAL HAEMORRHAGE [None]
